FAERS Safety Report 6450998-5 (Version None)
Quarter: 2009Q4

REPORT INFORMATION
  Report Type: 
  Country: None (occurrence: None)
  Receive Date: 20091123
  Receipt Date: 20091113
  Transmission Date: 20100525
  Serious: Yes (Other)
  Sender: FDA-Public Use
  Company Number: B0604258A

PATIENT
  Age: 46 Year
  Sex: Male
  Weight: 79 kg

DRUGS (13)
  1. SEROXAT [Suspect]
     Indication: ANXIETY
     Route: 048
     Dates: start: 20090701, end: 20090701
  2. SEROXAT [Suspect]
     Indication: DEPRESSION
     Route: 048
     Dates: start: 20090701, end: 20090701
  3. SEROXAT [Suspect]
     Dates: start: 20090101, end: 20090101
  4. EFFEXOR [Suspect]
     Indication: ANXIETY
     Route: 048
     Dates: start: 20090701, end: 20090701
  5. EFFEXOR [Suspect]
     Indication: DEPRESSION
     Route: 048
     Dates: start: 20090701, end: 20090701
  6. EFFEXOR [Suspect]
     Route: 048
     Dates: start: 20090701, end: 20090701
  7. EFFEXOR [Suspect]
     Route: 048
     Dates: start: 20090701, end: 20090801
  8. EFFEXOR [Suspect]
     Route: 048
     Dates: start: 20090801, end: 20090801
  9. BUSPIRONE HCL [Concomitant]
     Indication: ANXIETY
     Dosage: 30MG PER DAY
     Route: 048
     Dates: start: 20090701, end: 20090723
  10. BUSPIRONE HCL [Concomitant]
     Indication: DEPRESSION
  11. TRAZODONE HCL [Concomitant]
     Indication: ANXIETY
     Route: 048
     Dates: start: 20090122
  12. TRAZODONE HCL [Concomitant]
     Indication: DEPRESSION
  13. DIAZEPAM [Concomitant]

REACTIONS (4)
  - ABDOMINAL PAIN [None]
  - BACK PAIN [None]
  - DIARRHOEA [None]
  - VOMITING [None]
